FAERS Safety Report 10731124 (Version 1)
Quarter: 2015Q1

REPORT INFORMATION
  Report Type: Report from Study
  Country: KP (occurrence: KR)
  Receive Date: 20150122
  Receipt Date: 20150122
  Transmission Date: 20150721
  Serious: Yes (Hospitalization, Other)
  Sender: FDA-Public Use
  Company Number: KP-BRISTOL-MYERS SQUIBB COMPANY-21629720

PATIENT
  Age: 68 Year
  Sex: Female

DRUGS (10)
  1. GABAPENTIN. [Concomitant]
     Active Substance: GABAPENTIN
     Indication: PRODUCT USED FOR UNKNOWN INDICATION
     Route: 065
  2. OMEPRAZOLE. [Concomitant]
     Active Substance: OMEPRAZOLE
     Dosage: UNK
     Dates: start: 20141114
  3. DOMPERIDONE [Concomitant]
     Active Substance: DOMPERIDONE
     Indication: PRODUCT USED FOR UNKNOWN INDICATION
     Route: 065
  4. MYPOL [Concomitant]
  5. ACTIFED [Concomitant]
     Active Substance: PSEUDOEPHEDRINE HYDROCHLORIDE\TRIPROLIDINE HYDROCHLORIDE
     Indication: PRODUCT USED FOR UNKNOWN INDICATION
     Route: 065
  6. TRESTAN                            /00056201/ [Concomitant]
  7. NIVOLUMAB [Suspect]
     Active Substance: NIVOLUMAB
     Indication: NON-SMALL CELL LUNG CANCER
     Dosage: 3 MG/KG, QCYCLE
     Route: 042
     Dates: start: 20140904, end: 20141105
  8. BROMHEXINE HCL [Concomitant]
     Active Substance: BROMHEXINE HYDROCHLORIDE
     Indication: PRODUCT USED FOR UNKNOWN INDICATION
     Route: 065
  9. PHAZYME [Concomitant]
     Active Substance: DIMETHICONE 410
     Indication: PRODUCT USED FOR UNKNOWN INDICATION
     Route: 065
  10. GELMA [Concomitant]
     Dosage: UNK
     Dates: start: 20141115

REACTIONS (2)
  - Gastrooesophageal reflux disease [Recovering/Resolving]
  - Pulmonary embolism [Unknown]

NARRATIVE: CASE EVENT DATE: 20141112
